FAERS Safety Report 17966583 (Version 2)
Quarter: 2020Q3

REPORT INFORMATION
  Report Type: Spontaneous
  Country: FR (occurrence: FR)
  Receive Date: 20200701
  Receipt Date: 20200718
  Transmission Date: 20201103
  Serious: Yes (Life-Threatening, Other)
  Sender: FDA-Public Use
  Company Number: FR-AUROBINDO-AUR-APL-2020-031226

PATIENT
  Age: 78 Year
  Sex: Male
  Weight: 66.5 kg

DRUGS (10)
  1. ALPRAZOLAM ARROW TABLETS 0.25MG [Suspect]
     Active Substance: ALPRAZOLAM
     Dosage: UNK, HE DID NOT RESIGN
     Route: 048
     Dates: start: 20200510
  2. PANTOPRAZOLE ARROW GASTRO?RESISTANT TABLET 20MG [Suspect]
     Active Substance: PANTOPRAZOLE SODIUM
     Indication: PRODUCT USED FOR UNKNOWN INDICATION
     Dosage: UNK, HE DID NOT RESIGN
     Route: 048
     Dates: start: 20200430, end: 20200527
  3. ATORVASTATIN [Suspect]
     Active Substance: ATORVASTATIN
     Indication: PRODUCT USED FOR UNKNOWN INDICATION
     Dosage: 2 DOSAGE FORM (2 TABLETS OF 40 MG IN THE EVENING)
     Route: 048
     Dates: start: 20200520, end: 20200527
  4. SPIRONOLACTONE. [Suspect]
     Active Substance: SPIRONOLACTONE
     Indication: PRODUCT USED FOR UNKNOWN INDICATION
     Dosage: UNK, 1/2 CP FROM 06 TO 13/05, THEN 1 CP UNTIL 25/05, THEN 1/2 CP UNTIL 27/05
     Route: 048
     Dates: start: 20200506, end: 20200527
  5. ALPRAZOLAM ARROW TABLETS 0.25MG [Suspect]
     Active Substance: ALPRAZOLAM
     Dosage: 1 DOSAGE FORM (0.25 MG IN THE EVENING)
     Route: 048
     Dates: start: 20200510, end: 20200527
  6. ATORVASTATIN [Suspect]
     Active Substance: ATORVASTATIN
     Indication: PRODUCT USED FOR UNKNOWN INDICATION
     Dosage: NON RENSEIGN?
     Route: 048
     Dates: start: 20200520, end: 20200527
  7. PANTOPRAZOLE ARROW GASTRO?RESISTANT TABLET 20MG [Suspect]
     Active Substance: PANTOPRAZOLE SODIUM
     Dosage: 1 DOSAGE FORM (20 MG IN THE EVENING)
     Route: 048
     Dates: start: 20200429, end: 20200527
  8. SPIRONOLACTONE. [Suspect]
     Active Substance: SPIRONOLACTONE
     Indication: PRODUCT USED FOR UNKNOWN INDICATION
     Dosage: NON PR?CIS?
     Route: 048
     Dates: start: 20200509, end: 20200527
  9. RIVAROXABAN [Suspect]
     Active Substance: RIVAROXABAN
     Indication: PRODUCT USED FOR UNKNOWN INDICATION
     Dosage: NON RENSEIGN?
     Route: 048
     Dates: start: 20200506, end: 20200527
  10. XARELTO [Suspect]
     Active Substance: RIVAROXABAN
     Indication: PRODUCT USED FOR UNKNOWN INDICATION
     Dosage: 1 DOSAGE FORM (20 MG IN THE EVENING)
     Route: 048
     Dates: start: 20200505, end: 20200527

REACTIONS (1)
  - Agranulocytosis [Recovered/Resolved]

NARRATIVE: CASE EVENT DATE: 20200526
